FAERS Safety Report 17708018 (Version 1)
Quarter: 2020Q2

REPORT INFORMATION
  Report Type: Spontaneous
  Country: DE (occurrence: DE)
  Receive Date: 20200425
  Receipt Date: 20200425
  Transmission Date: 20200714
  Serious: Yes (Hospitalization)
  Sender: FDA-Public Use
  Company Number: DE-ACCORD-179776

PATIENT
  Age: 45 Year
  Sex: Female

DRUGS (4)
  1. TOPOTECAN [Suspect]
     Active Substance: TOPOTECAN HYDROCHLORIDE
     Indication: PRODUCT USED FOR UNKNOWN INDICATION
     Dosage: NK MG, NACH PLAN
  2. DOXORUBICIN [Suspect]
     Active Substance: DOXORUBICIN
     Indication: PRODUCT USED FOR UNKNOWN INDICATION
     Dosage: NK MG, NACH PLAN
  3. METAMIZOLE SODIUM [Concomitant]
     Active Substance: METAMIZOLE SODIUM
     Dosage: 30 GTT, 1-1-1-1
  4. PANTOPRAZOLE [Concomitant]
     Active Substance: PANTOPRAZOLE
     Dosage: 40 MG, 1-0-0-0

REACTIONS (6)
  - Fatigue [Unknown]
  - Tachycardia [Unknown]
  - Dehydration [Unknown]
  - Cytopenia [Unknown]
  - Thirst [Unknown]
  - General physical health deterioration [Unknown]
